FAERS Safety Report 4508881-8 (Version None)
Quarter: 2004Q4

REPORT INFORMATION
  Report Type: 
  Country: None (occurrence: None)
  Receive Date: 20041123
  Receipt Date: 20041108
  Transmission Date: 20050328
  Serious: Yes (Other)
  Sender: FDA-Public Use
  Company Number: PHEH2004US12037

PATIENT
  Age: 50 Year
  Sex: Female
  Weight: 46 kg

DRUGS (6)
  1. ZELNORM [Suspect]
     Indication: IRRITABLE BOWEL SYNDROME
     Dosage: 6 MG, BID
     Route: 048
     Dates: start: 20030101, end: 20041108
  2. TOPAMAX [Concomitant]
     Dosage: 150 MG, BID
     Route: 048
  3. XANAX [Concomitant]
     Dosage: .5 MG, QID
     Route: 048
  4. VIVELLE [Concomitant]
     Dosage: 0.25 MG EVERY WEEK
     Route: 062
  5. BEXTRA [Concomitant]
     Dosage: 20 MG, QD
  6. TRAZODONE HCL [Concomitant]

REACTIONS (8)
  - BACK PAIN [None]
  - CONSTIPATION [None]
  - DIZZINESS [None]
  - HAEMATOCHEZIA [None]
  - HEADACHE [None]
  - LOSS OF CONSCIOUSNESS [None]
  - ROAD TRAFFIC ACCIDENT [None]
  - TREATMENT NONCOMPLIANCE [None]
